FAERS Safety Report 24458223 (Version 1)
Quarter: 2024Q4

REPORT INFORMATION
  Report Type: Report from Study
  Country: CA (occurrence: CA)
  Receive Date: 20241018
  Receipt Date: 20241018
  Transmission Date: 20250114
  Serious: Yes (Other)
  Sender: ACCORD
  Company Number: None

PATIENT
  Age: 44 Year
  Sex: Female

DRUGS (3)
  1. LEVETIRACETAM [Suspect]
     Active Substance: LEVETIRACETAM
     Indication: Cyclic vomiting syndrome
     Route: 065
  2. LEVETIRACETAM [Suspect]
     Active Substance: LEVETIRACETAM
     Indication: Cyclic vomiting syndrome
     Dosage: 2 EVERY 1 DAYS
     Route: 048
  3. LEVETIRACETAM [Suspect]
     Active Substance: LEVETIRACETAM
     Indication: Cyclic vomiting syndrome
     Dosage: 2 EVERY 1 DAYS
     Route: 048

REACTIONS (4)
  - Drug effective for unapproved indication [Recovered/Resolved]
  - Negative thoughts [Recovered/Resolved]
  - Off label use [Recovered/Resolved]
  - Suicidal ideation [Recovered/Resolved]
